FAERS Safety Report 13426811 (Version 1)
Quarter: 2017Q2

REPORT INFORMATION
  Report Type: Spontaneous
  Country: US (occurrence: US)
  Receive Date: 20170411
  Receipt Date: 20170411
  Transmission Date: 20170830
  Serious: No
  Sender: FDA-Public Use
  Company Number: None

PATIENT

DRUGS (2)
  1. NORFLEX [Suspect]
     Active Substance: ORPHENADRINE CITRATE
  2. NOREPINEPHRINE BITARTRATE 4MG/4ML [Suspect]
     Active Substance: NOREPINEPHRINE BITARTRATE

REACTIONS (3)
  - Seizure [None]
  - Incorrect dose administered [None]
  - Drug dispensing error [None]
